FAERS Safety Report 19687825 (Version 2)
Quarter: 2021Q3

REPORT INFORMATION
  Report Type: Spontaneous
  Country: AR (occurrence: AR)
  Receive Date: 20210812
  Receipt Date: 20210814
  Transmission Date: 20211014
  Serious: Yes (Death, Other)
  Sender: FDA-Public Use
  Company Number: AR-ROCHE-2887831

PATIENT
  Age: 24 Year
  Sex: Female

DRUGS (1)
  1. RITUXIMAB. [Suspect]
     Active Substance: RITUXIMAB
     Indication: NEUROMYELITIS OPTICA SPECTRUM DISORDER
     Route: 042

REACTIONS (4)
  - Death [Fatal]
  - Myelitis transverse [Unknown]
  - Acute kidney injury [Unknown]
  - Off label use [Unknown]
